FAERS Safety Report 5355195-2 (Version None)
Quarter: 2007Q2

REPORT INFORMATION
  Report Type: 
  Country: None (occurrence: None)
  Receive Date: 20070611
  Receipt Date: 20070601
  Transmission Date: 20071010
  Serious: No
  Sender: FDA-Public Use
  Company Number: THQ2007A00352

PATIENT
  Age: 74 Year
  Sex: Male

DRUGS (3)
  1. PROSTAP 3 (LEUPROLIDE ACETATE) (INJECTION) [Suspect]
     Indication: PROSTATE CANCER
     Dosage: 11.25 MG (11.25 MG, 1 IN 3 M) SUBCUTANEOUS
     Route: 058
     Dates: start: 20060701
  2. LANSOPRAZOLE [Concomitant]
  3. PERINDOPRIL [Concomitant]

REACTIONS (1)
  - MENIERE'S DISEASE [None]
